FAERS Safety Report 12514537 (Version 1)
Quarter: 2016Q2

REPORT INFORMATION
  Report Type: Spontaneous
  Country: US (occurrence: None)
  Receive Date: 20160629
  Receipt Date: 20160629
  Transmission Date: 20160815
  Serious: No
  Sender: FDA-Public Use
  Company Number: None

PATIENT
  Age: 16 Year
  Sex: Male

DRUGS (5)
  1. IBUPROFEN. [Suspect]
     Active Substance: IBUPROFEN
  2. GLUCAGON PRN [Concomitant]
  3. MOM [Concomitant]
     Active Substance: MAGNESIUM HYDROXIDE
  4. TYLENOL [Concomitant]
     Active Substance: ACETAMINOPHEN
  5. GLUCOSE 4 GRAM [Concomitant]

REACTIONS (1)
  - Drug hypersensitivity [None]

NARRATIVE: CASE EVENT DATE: 20150916
